FAERS Safety Report 8575353-3 (Version None)
Quarter: 2012Q3

REPORT INFORMATION
  Report Type: 
  Country: None (occurrence: None)
  Receive Date: 20120807
  Receipt Date: 20120804
  Transmission Date: 20120928
  Serious: No
  Sender: FDA-Public Use
  Company Number: US-PFIZER INC-2012183352

PATIENT
  Sex: Male

DRUGS (2)
  1. SKELAXIN [Suspect]
     Indication: NEURALGIA
     Dosage: 800MG
     Dates: start: 20091005, end: 20091001
  2. GABAPENTIN [Suspect]
     Indication: NEURALGIA
     Dosage: 300 MG, 2X/DAY
     Dates: start: 20091118, end: 20091218

REACTIONS (2)
  - NEURALGIA [None]
  - DRUG INEFFECTIVE [None]
